FAERS Safety Report 16133788 (Version 4)
Quarter: 2019Q2

REPORT INFORMATION
  Report Type: Report from Study
  Country: JP (occurrence: JP)
  Receive Date: 20190329
  Receipt Date: 20190530
  Transmission Date: 20190711
  Serious: Yes (Hospitalization, Other)
  Sender: FDA-Public Use
  Company Number: JP-ASTELLAS-2018JP024156

PATIENT
  Age: 59 Year
  Sex: Female
  Weight: 43 kg

DRUGS (29)
  1. CEFEPIME HYDROCHLORIDE. [Concomitant]
     Active Substance: CEFEPIME HYDROCHLORIDE
     Indication: NASOPHARYNGITIS
     Route: 041
     Dates: start: 20181223, end: 20181227
  2. AZUNOL                             /00317302/ [Concomitant]
     Indication: PROPHYLAXIS
     Dosage: ADEQUATE DOSE, AS NEEDED
     Route: 061
     Dates: start: 20181227
  3. HYDREA [Concomitant]
     Active Substance: HYDROXYUREA
     Route: 048
     Dates: start: 20181225, end: 20181226
  4. LOXOPROFEN NA [Concomitant]
     Active Substance: LOXOPROFEN SODIUM
     Indication: BACK PAIN
     Dosage: UNK UNK, UNKNOWN FREQ.
     Route: 062
     Dates: start: 20181115
  5. LANSOPRAZOLE. [Concomitant]
     Active Substance: LANSOPRAZOLE
     Indication: GASTRITIS PROPHYLAXIS
     Route: 048
     Dates: start: 2017
  6. MIYA-BM [Concomitant]
     Active Substance: CLOSTRIDIUM BUTYRICUM SPORES STRAIN M-55
     Indication: CONSTIPATION PROPHYLAXIS
     Route: 048
     Dates: start: 2017
  7. HYDREA [Concomitant]
     Active Substance: HYDROXYUREA
     Indication: ACUTE MYELOID LEUKAEMIA
     Dosage: UNK UNK, UNKNOWN FREQ.
     Route: 048
     Dates: start: 20180903, end: 20180910
  8. HYDREA [Concomitant]
     Active Substance: HYDROXYUREA
     Route: 048
     Dates: start: 20181221
  9. HYDREA [Concomitant]
     Active Substance: HYDROXYUREA
     Route: 048
     Dates: start: 20181227
  10. LOXONIN [Concomitant]
     Active Substance: LOXOPROFEN SODIUM
     Indication: BACK PAIN
     Route: 062
     Dates: start: 20180926
  11. AUGMENTIN [Concomitant]
     Active Substance: AMOXICILLIN\CLAVULANATE POTASSIUM
     Indication: NASOPHARYNGITIS
     Dosage: UNK UNK, UNKNOWN FREQ.
     Route: 048
     Dates: start: 20181214, end: 20181215
  12. CARBOCISTEINE [Concomitant]
     Active Substance: CARBOCYSTEINE
     Indication: NASOPHARYNGITIS
     Route: 048
     Dates: start: 20181222, end: 20181227
  13. ZOVIRAX [Concomitant]
     Active Substance: ACYCLOVIR
     Indication: INFECTION PROPHYLAXIS
     Dosage: UNK UNK, UNKNOWN FREQ.
     Route: 048
     Dates: start: 201709, end: 20180930
  14. VFEND [Concomitant]
     Active Substance: VORICONAZOLE
     Indication: INFECTION PROPHYLAXIS
     Dosage: UNK UNK, UNKNOWN FREQ.
     Route: 048
     Dates: start: 201709, end: 20180925
  15. MAGNESIUM OXIDE. [Concomitant]
     Active Substance: MAGNESIUM OXIDE
     Indication: CONSTIPATION PROPHYLAXIS
     Dosage: UNK UNK, UNKNOWN FREQ.
     Route: 048
     Dates: start: 201709, end: 20181010
  16. HYDREA [Concomitant]
     Active Substance: HYDROXYUREA
     Dosage: UNK UNK, UNKNOWN FREQ.
     Route: 048
     Dates: start: 20180922, end: 20180925
  17. SUMILU [Concomitant]
     Active Substance: FELBINAC
     Indication: BACK PAIN
     Dosage: ADEQUATE DOSE, AS NEEDED
     Route: 062
     Dates: start: 20180926
  18. ASP2215 [Suspect]
     Active Substance: GILTERITINIB
     Indication: ACUTE MYELOID LEUKAEMIA
     Route: 048
     Dates: start: 20180926, end: 20181217
  19. BAKTAR [Concomitant]
     Active Substance: SULFAMETHOXAZOLE\TRIMETHOPRIM
     Indication: INFECTION PROPHYLAXIS
     Dosage: UNK UNK, UNKNOWN FREQ.
     Route: 048
     Dates: start: 201709, end: 20180930
  20. ACICLOVIR [Concomitant]
     Active Substance: ACYCLOVIR
     Indication: INFECTION PROPHYLAXIS
     Route: 048
     Dates: start: 20181001
  21. RENIVACE [Concomitant]
     Active Substance: ENALAPRIL
     Indication: CARDIAC FAILURE
     Route: 048
     Dates: start: 201803
  22. FLUCONAZOLE. [Concomitant]
     Active Substance: FLUCONAZOLE
     Indication: INFECTION PROPHYLAXIS
     Route: 048
     Dates: start: 20180930
  23. ASP2215 [Suspect]
     Active Substance: GILTERITINIB
     Route: 048
     Dates: start: 20181218, end: 20181227
  24. URSODEOXYCHOLIC ACID [Concomitant]
     Active Substance: URSODIOL
     Indication: PROPHYLAXIS
     Route: 048
     Dates: start: 2017
  25. CARVEDILOL. [Concomitant]
     Active Substance: CARVEDILOL
     Indication: CARDIAC FAILURE
     Route: 048
     Dates: start: 201803
  26. BAYASPIRIN [Concomitant]
     Active Substance: ASPIRIN
     Indication: CEREBRAL INFARCTION
     Route: 048
     Dates: start: 201804
  27. DAIPHEN [Concomitant]
     Active Substance: SULFAMETHOXAZOLE\TRIMETHOPRIM
     Indication: INFECTION PROPHYLAXIS
     Dosage: 1 DF, TWICE DAILY, TUESDAY AND FRIDAY ONLY
     Route: 048
     Dates: start: 20181001
  28. ALBUMIN TANNATE [Concomitant]
     Active Substance: ALBUMIN BOVINE\TANNIC ACID
     Indication: DIARRHOEA
     Route: 048
     Dates: start: 20181016
  29. PROPETO [Concomitant]
     Active Substance: PETROLATUM
     Indication: DRY SKIN PROPHYLAXIS
     Dosage: ADEQUATE DOSE, AS NEEDED
     Route: 061
     Dates: start: 20181226

REACTIONS (9)
  - Dysgeusia [Not Recovered/Not Resolved]
  - Neutrophil count decreased [Recovered/Resolved]
  - Acute myeloid leukaemia [Not Recovered/Not Resolved]
  - Anaemia [Not Recovered/Not Resolved]
  - Diarrhoea [Recovered/Resolved]
  - Arthralgia [Recovered/Resolved]
  - Hypoxia [Recovered/Resolved]
  - Diarrhoea [Recovered/Resolved]
  - Nasopharyngitis [Recovered/Resolved]

NARRATIVE: CASE EVENT DATE: 20180928
